FAERS Safety Report 10956123 (Version 1)
Quarter: 2015Q1

REPORT INFORMATION
  Report Type: Spontaneous
  Country: US (occurrence: US)
  Receive Date: 20150326
  Receipt Date: 20150326
  Transmission Date: 20150721
  Serious: No
  Sender: FDA-Public Use
  Company Number: US-009507513-1503USA004360

PATIENT
  Sex: Male

DRUGS (3)
  1. VIREAD [Concomitant]
     Active Substance: TENOFOVIR DISOPROXIL FUMARATE
     Dosage: 300 MG, UNK
  2. ISENTRESS [Suspect]
     Active Substance: RALTEGRAVIR POTASSIUM
     Dosage: 400 MG, ONE TABLET TWICE DAILY
     Route: 048
     Dates: start: 20140620
  3. INTELENCE [Concomitant]
     Active Substance: ETRAVIRINE
     Dosage: 200 MG, UNK

REACTIONS (2)
  - Tachyphrenia [Not Recovered/Not Resolved]
  - Poor quality sleep [Not Recovered/Not Resolved]
